FAERS Safety Report 4528197-3 (Version None)
Quarter: 2004Q4

REPORT INFORMATION
  Report Type: 
  Country: None (occurrence: None)
  Receive Date: 20041215
  Receipt Date: 20041208
  Transmission Date: 20050328
  Serious: Yes (Other)
  Sender: FDA-Public Use
  Company Number: US-MERCK-0412USA01054

PATIENT
  Age: 67 Year
  Sex: Female

DRUGS (7)
  1. VIOXX [Suspect]
     Indication: SPINAL OSTEOARTHRITIS
     Route: 048
     Dates: start: 20010727, end: 20041001
  2. VIOXX [Suspect]
     Indication: LOCALISED OSTEOARTHRITIS
     Route: 048
     Dates: start: 20010727, end: 20041001
  3. PREVACID [Concomitant]
     Route: 065
  4. PAXIL [Concomitant]
     Route: 065
  5. NORVASC [Concomitant]
     Route: 065
  6. HYZAAR [Concomitant]
     Route: 065
  7. LIPITOR [Concomitant]
     Route: 065

REACTIONS (1)
  - CEREBROVASCULAR ACCIDENT [None]
